FAERS Safety Report 23227003 (Version 1)
Quarter: 2023Q4

REPORT INFORMATION
  Report Type: Spontaneous
  Country: US (occurrence: US)
  Receive Date: 20231124
  Receipt Date: 20231124
  Transmission Date: 20240110
  Serious: Yes (Death, Other)
  Sender: FDA-Public Use
  Company Number: US-ENDO-CASE-0045877

PATIENT
  Sex: Female

DRUGS (3)
  1. PERCOCET [Suspect]
     Active Substance: ACETAMINOPHEN\OXYCODONE HYDROCHLORIDE
  2. TRAMADOL HYDROCHLORIDE [Suspect]
     Active Substance: TRAMADOL HYDROCHLORIDE
  3. ACETAMINOPHEN\OXYCODONE HYDROCHLORIDE [Suspect]
     Active Substance: ACETAMINOPHEN\OXYCODONE HYDROCHLORIDE

REACTIONS (12)
  - Death [Fatal]
  - Constipation [Unknown]
  - Dyschezia [Unknown]
  - Anxiety [Unknown]
  - Insomnia [Unknown]
  - Septic shock [Unknown]
  - Dependence [Unknown]
  - Functional gastrointestinal disorder [Unknown]
  - Dizziness [Unknown]
  - Dry mouth [Unknown]
  - Intestinal perforation [Unknown]
  - Brain fog [Unknown]
